FAERS Safety Report 11617028 (Version 1)
Quarter: 2015Q4

REPORT INFORMATION
  Report Type: Report from Study
  Country: US (occurrence: US)
  Receive Date: 20151009
  Receipt Date: 20151009
  Transmission Date: 20160304
  Serious: Yes (Hospitalization, Other)
  Sender: FDA-Public Use
  Company Number: US-GLAXOSMITHKLINE-US2015GSK143178

PATIENT
  Age: 71 Year
  Sex: Male
  Weight: 97.5 kg

DRUGS (10)
  1. OMEPRAZOLE. [Concomitant]
     Active Substance: OMEPRAZOLE
  2. TYKERB [Suspect]
     Active Substance: LAPATINIB DITOSYLATE
     Indication: HEAD AND NECK CANCER
     Dosage: UNK
     Route: 048
     Dates: start: 20150914
  3. SUCRALFATE. [Concomitant]
     Active Substance: SUCRALFATE
  4. LISINOPRIL. [Concomitant]
     Active Substance: LISINOPRIL
  5. PERCOCET [Concomitant]
     Active Substance: ACETAMINOPHEN\OXYCODONE HYDROCHLORIDE
  6. MELOXICAM. [Concomitant]
     Active Substance: MELOXICAM
  7. ONDANSETRON [Concomitant]
     Active Substance: ONDANSETRON
  8. VERAPAMIL [Concomitant]
     Active Substance: VERAPAMIL HYDROCHLORIDE
  9. CISPLATIN. [Suspect]
     Active Substance: CISPLATIN
     Indication: HEAD AND NECK CANCER
     Dosage: 224 MG, CYC
     Route: 042
     Dates: start: 20150914
  10. KEFLEX [Concomitant]
     Active Substance: CEPHALEXIN

REACTIONS (2)
  - Folliculitis [Recovering/Resolving]
  - Sepsis [Recovering/Resolving]

NARRATIVE: CASE EVENT DATE: 20151004
